FAERS Safety Report 14979940 (Version 1)
Quarter: 2018Q2

REPORT INFORMATION
  Report Type: Spontaneous
  Country: LU (occurrence: LU)
  Receive Date: 20180606
  Receipt Date: 20180606
  Transmission Date: 20180711
  Serious: Yes (Hospitalization)
  Sender: FDA-Public Use
  Company Number: LU-B. BRAUN MEDICAL INC.-2049079

PATIENT
  Age: 22 Year
  Sex: Female

DRUGS (4)
  1. REMIFENTANYL BASE [Suspect]
     Active Substance: REMIFENTANIL
     Route: 042
  2. SUCCINYLCHOLINE CHLORIDE. [Suspect]
     Active Substance: SUCCINYLCHOLINE CHLORIDE
     Route: 042
  3. PROPOFOL. [Suspect]
     Active Substance: PROPOFOL
     Route: 042
  4. LIDOCAINE HYDROCHLORIDE AND DEXTROSE [Suspect]
     Active Substance: DEXTROSE\LIDOCAINE HYDROCHLORIDE
     Route: 042

REACTIONS (1)
  - Anaphylactic reaction [Recovered/Resolved]

NARRATIVE: CASE EVENT DATE: 20171218
